FAERS Safety Report 21055218 (Version 1)
Quarter: 2022Q3

REPORT INFORMATION
  Report Type: Other
  Country: GB (occurrence: GB)
  Receive Date: 20220708
  Receipt Date: 20220708
  Transmission Date: 20221027
  Serious: Yes (Life-Threatening, Hospitalization, Other)
  Sender: FDA-Public Use
  Company Number: GB-CELLTRION INC.-2022GB010671

PATIENT

DRUGS (19)
  1. INFLIXIMAB [Suspect]
     Active Substance: INFLIXIMAB
     Indication: Colitis
     Dosage: 375MG STAT; ;(ADDITIONAL INFO: ROUTE:) PHARMACEUTICAL DOSE FORM: INJECTION
     Route: 042
     Dates: start: 20220608
  2. CALCIUM CARBONATE\CHOLECALCIFEROL [Concomitant]
     Active Substance: CALCIUM CARBONATE\CHOLECALCIFEROL
     Dosage: ADDITIONAL INFO: ROUTE:
  3. AMLODIPINE [Concomitant]
     Active Substance: AMLODIPINE BESYLATE
     Dosage: ADDITIONAL INFO: ROUTE:
  4. AMOXICILLIN\CLAVULANATE POTASSIUM [Concomitant]
     Active Substance: AMOXICILLIN\CLAVULANATE POTASSIUM
     Dosage: ADDITIONAL INFO: ROUTE:
  5. DOXAZOSIN [Concomitant]
     Active Substance: DOXAZOSIN MESYLATE
     Dosage: ADDITIONAL INFO: ROUTE:
  6. ENOXAPARIN [Concomitant]
     Active Substance: ENOXAPARIN
     Dosage: ADDITIONAL INFO: ROUTE:
  7. FUROSEMIDE [Concomitant]
     Active Substance: FUROSEMIDE
     Dosage: ADDITIONAL INFO: ROUTE:
  8. HALOPERIDOL [Concomitant]
     Active Substance: HALOPERIDOL
     Dosage: ADDITIONAL INFO: ROUTE:
  9. HYDROCORTISONE [Concomitant]
     Active Substance: HYDROCORTISONE
     Dosage: ADDITIONAL INFO: ROUTE:
  10. METRONIDAZOLE [Concomitant]
     Active Substance: METRONIDAZOLE
     Dosage: ADDITIONAL INFO: ROUTE:
  11. MORPHINE [Concomitant]
     Active Substance: MORPHINE
     Dosage: ADDITIONAL INFO: ROUTE:
  12. OMEPRAZOLE [Concomitant]
     Active Substance: OMEPRAZOLE
     Dosage: ADDITIONAL INFO: ROUTE:
  13. PABRINEX [ASCORBIC ACID;GLUCOSE;NICOTINAMIDE;PYRIDOXINE HYDROCHLORIDE; [Concomitant]
     Dosage: ADDITIONAL INFO: ROUTE:
  14. ACETAMINOPHEN [Concomitant]
     Active Substance: ACETAMINOPHEN
     Dosage: ADDITIONAL INFO: ROUTE:
  15. PREDNISOLONE [Concomitant]
     Active Substance: PREDNISOLONE
     Dosage: ADDITIONAL INFO: ROUTE:
  16. RAMIPRIL [Concomitant]
     Active Substance: RAMIPRIL
     Dosage: ADDITIONAL INFO: ROUTE:
  17. ALBUTEROL [Concomitant]
     Active Substance: ALBUTEROL
     Dosage: ADDITIONAL INFO: ROUTE:
  18. PIPERACILLIN SODIUM\TAZOBACTAM SODIUM [Concomitant]
     Active Substance: PIPERACILLIN SODIUM\TAZOBACTAM SODIUM
     Dosage: ADDITIONAL INFO: ROUTE:
  19. VITAMIN B COMPLEX [NICOTINAMIDE;PYRIDOXINE HYDROCHLORIDE;RIBOFLAVIN;TH [Concomitant]
     Dosage: ADDITIONAL INFO: ROUTE:

REACTIONS (4)
  - Megacolon [Unknown]
  - Aspergilloma [Not Recovered/Not Resolved]
  - Off label use [Unknown]
  - Underdose [Unknown]

NARRATIVE: CASE EVENT DATE: 20220610
